FAERS Safety Report 5828975-4 (Version None)
Quarter: 2008Q3

REPORT INFORMATION
  Report Type: 
  Country: None (occurrence: None)
  Receive Date: 20080731
  Receipt Date: 20080721
  Transmission Date: 20090109
  Serious: Yes (Hospitalization, Other)
  Sender: FDA-Public Use
  Company Number: PHHY2008FR15206

PATIENT
  Sex: Male

DRUGS (11)
  1. NEORAL [Suspect]
     Dosage: 50 MG/DAY
     Route: 048
  2. PROGRAF [Suspect]
     Dosage: UNK
     Route: 048
     Dates: start: 20010101, end: 20010710
  3. CELLCEPT [Suspect]
     Dosage: 150 MG, BID
     Dates: start: 20010710
  4. URSOLVAN-200 [Suspect]
     Dosage: 400 MG, BID
     Route: 048
  5. SABRIL [Suspect]
     Dosage: 1 DAILY
     Route: 048
  6. TOPIRAMATE [Suspect]
     Dosage: 75 MG, BID
     Route: 048
  7. FK 506 [Concomitant]
  8. CORTICOSTEROIDS [Concomitant]
     Dosage: UNK
     Dates: end: 20020101
  9. MOTILIUM [Concomitant]
  10. BECOTIDE [Concomitant]
  11. VENTOLIN [Concomitant]

REACTIONS (17)
  - ANGIOEDEMA [None]
  - ASTHMA [None]
  - DIARRHOEA [None]
  - DRUG INEFFECTIVE [None]
  - DYSPNOEA [None]
  - EPILEPSY [None]
  - FOOD ALLERGY [None]
  - GASTROINTESTINAL DISORDER [None]
  - GASTROOESOPHAGEAL REFLUX DISEASE [None]
  - HEPATIC ENCEPHALOPATHY [None]
  - HYPOXIA [None]
  - LIP OEDEMA [None]
  - MULTIPLE ALLERGIES [None]
  - NEUROLOGICAL SYMPTOM [None]
  - RESPIRATORY FAILURE [None]
  - RESPIRATORY TRACT CONGESTION [None]
  - SLEEP APNOEA SYNDROME [None]
